FAERS Safety Report 5588810-9 (Version None)
Quarter: 2008Q1

REPORT INFORMATION
  Report Type: 
  Country: None (occurrence: None)
  Receive Date: 20080111
  Receipt Date: 20080103
  Transmission Date: 20080703
  Serious: Yes (Hospitalization, Other)
  Sender: FDA-Public Use
  Company Number: US-PFIZER INC-2008000680

PATIENT
  Age: 49 Year
  Sex: Female
  Weight: 69.4 kg

DRUGS (2)
  1. SUTENT [Suspect]
     Indication: BREAST CANCER
     Route: 048
  2. BEVACIZUMAB [Suspect]
     Indication: BREAST CANCER
     Route: 042

REACTIONS (4)
  - DYSPNOEA [None]
  - HYPOXIA [None]
  - OEDEMA [None]
  - PLEURAL EFFUSION [None]
